FAERS Safety Report 12818401 (Version 1)
Quarter: 2016Q4

REPORT INFORMATION
  Report Type: Spontaneous
  Country: BR (occurrence: BR)
  Receive Date: 20161005
  Receipt Date: 20161005
  Transmission Date: 20170207
  Serious: Yes (Other)
  Sender: FDA-Public Use
  Company Number: PHHY2016BR135436

PATIENT
  Sex: Male

DRUGS (1)
  1. DIOVAN AMLO FIX [Suspect]
     Active Substance: AMLODIPINE\VALSARTAN
     Indication: PRODUCT USED FOR UNKNOWN INDICATION
     Dosage: (VALSARTAN 160MG AND AMLODIPINE 5MG )
     Route: 065
     Dates: start: 2016

REACTIONS (5)
  - Cerebrovascular accident [Unknown]
  - Gait disturbance [Unknown]
  - Speech disorder [Unknown]
  - Heart rate increased [Unknown]
  - Blood pressure increased [Unknown]
